FAERS Safety Report 15125246 (Version 1)
Quarter: 2018Q3

REPORT INFORMATION
  Report Type: Spontaneous
  Country: US (occurrence: US)
  Receive Date: 20180710
  Receipt Date: 20180710
  Transmission Date: 20181010
  Serious: No
  Sender: FDA-Public Use
  Company Number: US-BAYER-2018-125281

PATIENT
  Age: 69 Year
  Sex: Female
  Weight: 63.99 kg

DRUGS (2)
  1. LEVOTHYROXINE. [Concomitant]
     Active Substance: LEVOTHYROXINE
  2. CLARITIN [Suspect]
     Active Substance: LORATADINE
     Indication: RASH
     Dosage: UNK
     Route: 048

REACTIONS (7)
  - Off label use [Unknown]
  - Dry mouth [Recovered/Resolved]
  - Product prescribing issue [Unknown]
  - Incorrect dosage administered [Unknown]
  - Dizziness [Recovered/Resolved]
  - Product use in unapproved indication [Unknown]
  - Incorrect dosage administered [Unknown]

NARRATIVE: CASE EVENT DATE: 20180622
